FAERS Safety Report 17771823 (Version 1)
Quarter: 2020Q2

REPORT INFORMATION
  Report Type: Spontaneous
  Country: US (occurrence: US)
  Receive Date: 20200512
  Receipt Date: 20200512
  Transmission Date: 20200714
  Serious: Yes (Hospitalization)
  Sender: FDA-Public Use
  Company Number: US-ELI_LILLY_AND_COMPANY-US202005000203

PATIENT
  Sex: Female

DRUGS (1)
  1. GLUCAGON. [Suspect]
     Active Substance: GLUCAGON
     Indication: PRODUCT USED FOR UNKNOWN INDICATION
     Dosage: UNK, UNKNOWN
     Route: 030

REACTIONS (2)
  - Vomiting [Unknown]
  - Addison^s disease [Unknown]
